FAERS Safety Report 19011104 (Version 1)
Quarter: 2021Q1

REPORT INFORMATION
  Report Type: Spontaneous
  Country: US (occurrence: US)
  Receive Date: 20210315
  Receipt Date: 20210315
  Transmission Date: 20210420
  Serious: No
  Sender: FDA-Public Use
  Company Number: None

PATIENT
  Age: 65 Year
  Sex: Female
  Weight: 65.7 kg

DRUGS (5)
  1. FLAGYL [Suspect]
     Active Substance: METRONIDAZOLE\METRONIDAZOLE HYDROCHLORIDE
  2. VITAMINS C + D [Concomitant]
  3. LOSARTAN 100MG [Concomitant]
     Active Substance: LOSARTAN
  4. CIPROFLOXACIN HCL 500MG TABS [Suspect]
     Active Substance: CIPROFLOXACIN HYDROCHLORIDE
     Indication: DIVERTICULITIS
     Dosage: ?          QUANTITY:1 TABLET(S);?
     Route: 048
     Dates: start: 20210226, end: 20210303
  5. MULTIVITAMIN [Concomitant]
     Active Substance: VITAMINS

REACTIONS (9)
  - Insomnia [None]
  - Depression [None]
  - Arthralgia [None]
  - Pain in extremity [None]
  - Neck pain [None]
  - Tinnitus [None]
  - Diarrhoea [None]
  - Headache [None]
  - Tendon pain [None]

NARRATIVE: CASE EVENT DATE: 20210301
